FAERS Safety Report 7622537-4 (Version None)
Quarter: 2011Q3

REPORT INFORMATION
  Report Type: 
  Country: None (occurrence: None)
  Receive Date: 20110712
  Receipt Date: 20110706
  Transmission Date: 20111222
  Serious: Yes (Hospitalization)
  Sender: FDA-Public Use
  Company Number: 2011SP006159

PATIENT
  Age: 75 Year
  Sex: Female

DRUGS (5)
  1. URSODEOXYCHOLIC AC [Concomitant]
  2. MIRTAZAPINE [Suspect]
     Indication: DEPRESSION
     Dosage: 15 MG; QD; PO
     Route: 048
     Dates: start: 20101002
  3. ANAFRANIL [Concomitant]
  4. CYMBALTA [Concomitant]
  5. LACTULOSE [Concomitant]

REACTIONS (6)
  - HEPATIC FAILURE [None]
  - DEPRESSED LEVEL OF CONSCIOUSNESS [None]
  - LABORATORY TEST ABNORMAL [None]
  - MALAISE [None]
  - HYPERAMMONAEMIA [None]
  - CONDITION AGGRAVATED [None]
